FAERS Safety Report 11591948 (Version 1)
Quarter: 2015Q4

REPORT INFORMATION
  Report Type: Spontaneous
  Country: JP (occurrence: JP)
  Receive Date: 20151005
  Receipt Date: 20151005
  Transmission Date: 20160304
  Serious: Yes (Death, Hospitalization, Disabling, Other)
  Sender: FDA-Public Use
  Company Number: JP-ROCHE-1558947

PATIENT
  Age: 50 Year
  Sex: Female

DRUGS (4)
  1. ELPLAT [Concomitant]
     Active Substance: OXALIPLATIN
     Indication: COLON CANCER
     Route: 041
  2. AVASTIN [Suspect]
     Active Substance: BEVACIZUMAB
     Indication: COLON CANCER METASTATIC
     Dosage: TREATMENT LINE: 1 COMPLETED TREATMENT CYCLE NO. 10
     Route: 041
     Dates: start: 20120426, end: 20121101
  3. XELODA [Suspect]
     Active Substance: CAPECITABINE
     Indication: COLON CANCER
     Dosage: COMPLETED TREATMENT CYCLE NUMBER: 10
     Route: 048
     Dates: start: 20120426, end: 20121018
  4. IRINOTECAN HYDROCHLORIDE. [Concomitant]
     Active Substance: IRINOTECAN HYDROCHLORIDE
     Indication: COLON CANCER
     Dosage: DOSAGE IS UNCERTAIN.
     Route: 041
     Dates: start: 20121101, end: 20121101

REACTIONS (4)
  - Gastrointestinal perforation [Recovered/Resolved]
  - Colon cancer [Fatal]
  - Abdominal pain [Unknown]
  - Ascites [Unknown]

NARRATIVE: CASE EVENT DATE: 20121105
